FAERS Safety Report 12555210 (Version 1)
Quarter: 2016Q3

REPORT INFORMATION
  Report Type: Spontaneous
  Country: FI (occurrence: FI)
  Receive Date: 20160714
  Receipt Date: 20160714
  Transmission Date: 20161109
  Serious: Yes (Other)
  Sender: FDA-Public Use
  Company Number: FI-ROCHE-1792123

PATIENT
  Age: 67 Year
  Sex: Female

DRUGS (15)
  1. NEXIUM [Concomitant]
     Active Substance: ESOMEPRAZOLE MAGNESIUM
  2. CALCICHEW D3 FORTE [Concomitant]
     Active Substance: CALCIUM\CHOLECALCIFEROL
  3. DERMOVAT [Concomitant]
     Active Substance: CLOBETASOL
  4. BONVIVA [Concomitant]
     Active Substance: IBANDRONATE SODIUM
     Route: 065
  5. KETOMEX [Concomitant]
  6. RHINOCORT [Concomitant]
     Active Substance: BUDESONIDE
  7. BETOLVEX [Concomitant]
     Active Substance: CYANOCOBALAMIN
  8. MABTHERA [Suspect]
     Active Substance: RITUXIMAB
     Indication: RHEUMATOID ARTHRITIS
     Route: 041
     Dates: start: 20090601, end: 20151029
  9. MABTHERA [Suspect]
     Active Substance: RITUXIMAB
     Indication: RHEUMATOID ARTHRITIS
  10. VENTOLINE [Concomitant]
     Active Substance: ALBUTEROL
  11. SERETIDE [Concomitant]
     Active Substance: FLUTICASONE PROPIONATE\SALMETEROL XINAFOATE
  12. LACTIC ACID BACTERIA [Concomitant]
  13. PREDNISOLON [Concomitant]
     Active Substance: PREDNISOLONE
     Route: 065
     Dates: start: 2016
  14. EUCREAS [Concomitant]
     Active Substance: METFORMIN HYDROCHLORIDE\VILDAGLIPTIN
  15. PREDNISOLON [Concomitant]
     Active Substance: PREDNISOLONE
     Route: 065
     Dates: start: 2016

REACTIONS (1)
  - Interstitial lung disease [Unknown]

NARRATIVE: CASE EVENT DATE: 20160126
